FAERS Safety Report 6745222-X (Version None)
Quarter: 2010Q2

REPORT INFORMATION
  Report Type: 
  Country: None (occurrence: None)
  Receive Date: 20100528
  Receipt Date: 20100519
  Transmission Date: 20101027
  Serious: Yes (Hospitalization)
  Sender: FDA-Public Use
  Company Number: DE-BIOGENIDEC-2010BI017271

PATIENT
  Age: 36 Year
  Sex: Male
  Weight: 135 kg

DRUGS (1)
  1. AVONEX [Suspect]
     Indication: RELAPSING-REMITTING MULTIPLE SCLEROSIS
     Route: 030
     Dates: start: 20080501

REACTIONS (2)
  - GAIT DISTURBANCE [None]
  - MUSCLE SPASTICITY [None]
